FAERS Safety Report 7632249-9 (Version None)
Quarter: 2011Q3

REPORT INFORMATION
  Report Type: 
  Country: None (occurrence: None)
  Receive Date: 20110725
  Receipt Date: 20100707
  Transmission Date: 20111222
  Serious: No
  Sender: FDA-Public Use
  Company Number: US-BRISTOL-MYERS SQUIBB COMPANY-15180870

PATIENT
  Age: 68 Year
  Sex: Male
  Weight: 104 kg

DRUGS (7)
  1. SIMVASTATIN [Concomitant]
  2. ASPIRIN [Concomitant]
     Dosage: LOW DOSE ASPIRIN
  3. CELEBREX [Suspect]
     Indication: BACK DISORDER
  4. SAW PALMETTO [Concomitant]
  5. COUMADIN [Suspect]
     Indication: ATRIAL FIBRILLATION
     Dosage: FOR 6-7 YRS; ALSO ON 4MG/DAY
  6. BENICAR [Suspect]
  7. VERAPAMIL [Concomitant]

REACTIONS (3)
  - BACK DISORDER [None]
  - INTERNATIONAL NORMALISED RATIO FLUCTUATION [None]
  - WEIGHT DECREASED [None]
